FAERS Safety Report 5099661-6 (Version None)
Quarter: 2006Q3

REPORT INFORMATION
  Report Type: 
  Country: None (occurrence: None)
  Receive Date: 20060908
  Receipt Date: 20060622
  Transmission Date: 20061208
  Serious: Yes (Hospitalization)
  Sender: FDA-Public Use
  Company Number: US-ROCHE-452711

PATIENT
  Age: 71 Year
  Sex: Female
  Weight: 78.9 kg

DRUGS (4)
  1. CAPECITABINE [Suspect]
     Indication: BREAST CANCER
     Route: 048
     Dates: start: 20060531, end: 20060531
  2. CAPECITABINE [Suspect]
     Route: 048
     Dates: start: 20060607, end: 20060607
  3. METHOTREXATE [Concomitant]
     Route: 042
     Dates: start: 20060531
  4. VINORELBINE [Concomitant]
     Route: 042
     Dates: start: 20060531

REACTIONS (14)
  - CHILLS [None]
  - CHOLANGITIS [None]
  - DECREASED APPETITE [None]
  - DIARRHOEA [None]
  - FEBRILE NEUTROPENIA [None]
  - HEPATIC FAILURE [None]
  - HYPERHIDROSIS [None]
  - HYPOKALAEMIA [None]
  - MALNUTRITION [None]
  - MUCOSAL INFLAMMATION [None]
  - NAUSEA [None]
  - PANCYTOPENIA [None]
  - PYREXIA [None]
  - VOMITING [None]
